FAERS Safety Report 22125010 (Version 8)
Quarter: 2024Q1

REPORT INFORMATION
  Report Type: Report from Study
  Country: DE (occurrence: DE)
  Receive Date: 20230322
  Receipt Date: 20240305
  Transmission Date: 20240410
  Serious: Yes (Other)
  Sender: FDA-Public Use
  Company Number: DE-PFM-2023-00972

PATIENT
  Age: 68 Year
  Sex: Female

DRUGS (10)
  1. ENCORAFENIB [Suspect]
     Active Substance: ENCORAFENIB
     Indication: Malignant melanoma
     Dosage: 450 MG, 1 X PER DAY
     Route: 048
     Dates: start: 20211117, end: 20230217
  2. BINIMETINIB [Suspect]
     Active Substance: BINIMETINIB
     Indication: Malignant melanoma
     Dosage: 45MG, BID (2/DAY)
     Route: 048
     Dates: start: 20211117, end: 20230217
  3. CALCIUM [Concomitant]
     Active Substance: CALCIUM
     Dosage: UNK
     Route: 065
     Dates: start: 20211213
  4. ZOMETA (BISPHOSPHONATE) [Concomitant]
     Indication: Metastases to bone
     Dosage: UNK
     Route: 065
     Dates: start: 20211221, end: 20230103
  5. VITAMIN D3 [Concomitant]
     Active Substance: CHOLECALCIFEROL
     Indication: Prophylaxis
     Dosage: UNK
     Route: 065
     Dates: start: 20211221
  6. XGEVA (BISPHOSPHONATE) [Concomitant]
     Indication: Metastases to bone
     Dosage: UNK
     Route: 065
     Dates: start: 20230228
  7. CHOLECALCIFEROL [Concomitant]
     Active Substance: CHOLECALCIFEROL
     Indication: Prophylaxis
     Dosage: UNK
     Route: 065
  8. ZOLPIDEM TARTRATE [Concomitant]
     Active Substance: ZOLPIDEM TARTRATE
     Indication: Sleep disorder
     Dosage: UNK
     Route: 065
     Dates: start: 20230310, end: 20230315
  9. NALOXONE HYDROCHLORIDE\TILIDINE HYDROCHLORIDE [Concomitant]
     Active Substance: NALOXONE HYDROCHLORIDE\TILIDINE HYDROCHLORIDE
     Indication: Osteoarthritis
     Dosage: UNK
     Route: 065
     Dates: start: 20220105, end: 202203
  10. METAMIZOLE [Concomitant]
     Active Substance: METAMIZOLE
     Indication: Osteoarthritis
     Dosage: UNK
     Route: 065
     Dates: start: 20220105, end: 202203

REACTIONS (8)
  - Autoimmune hepatitis [Unknown]
  - Alanine aminotransferase increased [Recovered/Resolved]
  - Aspartate aminotransferase increased [Recovered/Resolved]
  - Alanine aminotransferase increased [Recovered/Resolved]
  - Aspartate aminotransferase increased [Recovered/Resolved]
  - Blood lactate dehydrogenase increased [Recovered/Resolved]
  - Blood creatine phosphokinase increased [Recovered/Resolved]
  - Insomnia [Recovered/Resolved]

NARRATIVE: CASE EVENT DATE: 20230209
